FAERS Safety Report 9943872 (Version 2)
Quarter: 2014Q1

REPORT INFORMATION
  Report Type: Spontaneous
  Country: US (occurrence: US)
  Receive Date: 20140303
  Receipt Date: 20140303
  Transmission Date: 20141002
  Serious: No
  Sender: FDA-Public Use
  Company Number: US-GILEAD-2012-0053335

PATIENT
  Sex: Male

DRUGS (2)
  1. RANEXA [Suspect]
     Indication: ANGINA PECTORIS
     Dosage: 1000 MG, UNK
     Route: 048
  2. NADOLOL [Concomitant]

REACTIONS (3)
  - Hyperreflexia [Recovered/Resolved]
  - Dyskinesia [Recovered/Resolved]
  - Muscle spasms [Recovered/Resolved]
